FAERS Safety Report 20147480 (Version 1)
Quarter: 2021Q4

REPORT INFORMATION
  Report Type: Spontaneous
  Country: UM (occurrence: US)
  Receive Date: 20211203
  Receipt Date: 20211203
  Transmission Date: 20220303
  Serious: No
  Sender: FDA-Public Use
  Company Number: UM-SA-SAC20211127000346

PATIENT
  Sex: Female

DRUGS (8)
  1. AUBAGIO [Suspect]
     Active Substance: TERIFLUNOMIDE
     Indication: Multiple sclerosis
     Dosage: 14 MG, QD
     Route: 048
  2. ASPIRIN [Concomitant]
     Active Substance: ASPIRIN
  3. ACTHAR [Concomitant]
     Active Substance: CORTICOTROPIN
  4. TYLENOL [Concomitant]
     Active Substance: ACETAMINOPHEN
  5. PYRIDOXAL PHOSPHATE ANHYDROUS [Concomitant]
     Active Substance: PYRIDOXAL PHOSPHATE ANHYDROUS
  6. VITAMINA C [ASCORBIC ACID] [Concomitant]
  7. VITAMIN D3 [Concomitant]
     Active Substance: CHOLECALCIFEROL
  8. ATENOLOL [Concomitant]
     Active Substance: ATENOLOL

REACTIONS (3)
  - Balance disorder [Unknown]
  - Asthenia [Unknown]
  - Malaise [Unknown]
